FAERS Safety Report 20809080 (Version 1)
Quarter: 2022Q2

REPORT INFORMATION
  Report Type: Spontaneous
  Country: FR (occurrence: FR)
  Receive Date: 20220510
  Receipt Date: 20220510
  Transmission Date: 20220721
  Serious: Yes (Other)
  Sender: FDA-Public Use
  Company Number: FR-PFIZER INC-202200637955

PATIENT
  Age: 37 Year
  Sex: Male

DRUGS (1)
  1. QUINAPRIL [Suspect]
     Active Substance: QUINAPRIL
     Dosage: UNK
     Dates: start: 2021

REACTIONS (5)
  - Systemic lupus erythematosus [Unknown]
  - Neoplasm malignant [Unknown]
  - Muscle disorder [Unknown]
  - Blood thrombin increased [Unknown]
  - Antiphospholipid antibodies positive [Unknown]

NARRATIVE: CASE EVENT DATE: 20211001
